FAERS Safety Report 8559314-6 (Version None)
Quarter: 2012Q3

REPORT INFORMATION
  Report Type: 
  Country: None (occurrence: None)
  Receive Date: 20120802
  Receipt Date: 20120730
  Transmission Date: 20120928
  Serious: Yes (Other)
  Sender: FDA-Public Use
  Company Number: PHHY2012IT065963

PATIENT
  Age: 62 Year
  Sex: Female

DRUGS (2)
  1. TASIGNA [Suspect]
     Indication: CHRONIC MYELOID LEUKAEMIA
     Dosage: 600 MG, QOD
     Route: 048
     Dates: start: 20111221, end: 20120615
  2. SIMVASTATIN [Concomitant]
     Dosage: UNK

REACTIONS (1)
  - PLEURAL EFFUSION [None]
